FAERS Safety Report 17638333 (Version 1)
Quarter: 2020Q2

REPORT INFORMATION
  Report Type: Spontaneous
  Country: IE (occurrence: IE)
  Receive Date: 20200407
  Receipt Date: 20200407
  Transmission Date: 20200713
  Serious: Yes (Hospitalization, Other)
  Sender: FDA-Public Use
  Company Number: IE-TEVA-2019-IE-1020723

PATIENT
  Age: 61 Year
  Sex: Female

DRUGS (6)
  1. BRIEKA [Suspect]
     Active Substance: PREGABALIN
     Dosage: PATIENT REDUCED DOSE AT TWO WEEKS INTERVALS OR EVERY 2-3 DAYS, OVER 6 MONTHS BEFORE COMING OFF COMPL
  2. BRIEKA [Suspect]
     Active Substance: PREGABALIN
     Indication: NEURALGIA
     Route: 048
     Dates: start: 201809, end: 20181213
  3. XANAX [Concomitant]
     Active Substance: ALPRAZOLAM
     Indication: PAIN
  4. XANAX [Concomitant]
     Active Substance: ALPRAZOLAM
     Indication: MUSCLE RELAXANT THERAPY
  5. OXYCONTIN [Concomitant]
     Active Substance: OXYCODONE HYDROCHLORIDE
  6. MORPHINE SULPHATE (GENERIC) [Concomitant]

REACTIONS (12)
  - Feeling hot [Recovered/Resolved]
  - Fear [Recovered/Resolved]
  - Abdominal distension [Recovered/Resolved]
  - Nausea [Recovered/Resolved]
  - Fatigue [Recovered/Resolved]
  - Emotional distress [Recovered/Resolved]
  - Insomnia [Recovered/Resolved]
  - Crying [Recovered/Resolved]
  - Drug withdrawal syndrome [Recovered/Resolved]
  - Agitation [Recovered/Resolved]
  - Malaise [Recovered/Resolved]
  - Movement disorder [Recovered/Resolved]

NARRATIVE: CASE EVENT DATE: 20181214
